FAERS Safety Report 7053523-3 (Version None)
Quarter: 2010Q4

REPORT INFORMATION
  Report Type: 
  Country: None (occurrence: None)
  Receive Date: 20101020
  Receipt Date: 20100927
  Transmission Date: 20110411
  Serious: No
  Sender: FDA-Public Use
  Company Number: US-PFIZER INC-2010123345

PATIENT
  Sex: Male
  Weight: 71.202 kg

DRUGS (13)
  1. GABAPENTIN [Suspect]
     Indication: PAIN IN EXTREMITY
     Dosage: 300 MG, DAILY OR TWO TIMES A DAY
     Route: 048
     Dates: start: 20100101
  2. GABAPENTIN [Suspect]
     Indication: HYPOAESTHESIA
  3. NEURONTIN [Suspect]
     Indication: NEUROPATHY PERIPHERAL
     Dosage: 300 MG, 3X/DAY
     Route: 048
     Dates: end: 20101010
  4. NEURONTIN [Suspect]
     Indication: GAIT DISTURBANCE
  5. NEURONTIN [Suspect]
     Indication: PAIN
  6. LEXAPRO [Concomitant]
     Indication: ANXIETY
     Dosage: 20 MG, DAILY
     Route: 048
  7. LEXAPRO [Concomitant]
     Indication: DEPRESSION
  8. LEVOTHYROXINE [Concomitant]
     Indication: THYROID DISORDER
     Dosage: 200 MG, DAILY
     Route: 048
  9. NEXIUM [Concomitant]
     Indication: DYSPEPSIA
     Dosage: 40 MG, DAILY
     Route: 048
  10. VALIUM [Concomitant]
     Dosage: UNK
     Route: 048
  11. VITAMIN B1 TAB [Concomitant]
     Dosage: 100 MG, DAILY
  12. VITAMIN D [Concomitant]
     Dosage: UNKNOWN DOSE, DAILY
  13. ACETYLSALICYLIC ACID [Concomitant]
     Indication: ANTICOAGULANT THERAPY
     Dosage: 81 MG, DAILY

REACTIONS (1)
  - DRUG INEFFECTIVE [None]
